FAERS Safety Report 7125305-5 (Version None)
Quarter: 2010Q4

REPORT INFORMATION
  Report Type: 
  Country: None (occurrence: None)
  Receive Date: 20101129
  Receipt Date: 20101117
  Transmission Date: 20110411
  Serious: Yes (Hospitalization, Other)
  Sender: FDA-Public Use
  Company Number: FR-ROCHE-693249

PATIENT
  Sex: Female
  Weight: 68 kg

DRUGS (20)
  1. MYCOPHENOLATE MOFETIL [Suspect]
     Route: 065
     Dates: start: 20100207, end: 20100315
  2. MYCOPHENOLATE MOFETIL [Suspect]
     Route: 065
     Dates: start: 20100316
  3. PROGRAF [Suspect]
     Route: 065
     Dates: start: 20100210, end: 20100219
  4. PROGRAF [Suspect]
     Route: 065
     Dates: start: 20100220
  5. PROGRAF [Suspect]
     Dosage: TOTAL DAILY DOSE: 10MG TO 8MG.
     Route: 065
     Dates: end: 20100823
  6. CORTANCYL [Suspect]
     Dosage: 35 MG FOLLOWED BY 17.5 MG
     Route: 065
     Dates: start: 20100208, end: 20100218
  7. CORTANCYL [Suspect]
     Dosage: 35 MG FOLLOWED BY 17.5 MG
     Route: 065
     Dates: end: 20100819
  8. CORTANCYL [Suspect]
     Route: 065
     Dates: start: 20100820
  9. SIMULECT [Suspect]
     Route: 065
     Dates: start: 20100207, end: 20100207
  10. SIMULECT [Suspect]
     Route: 065
     Dates: start: 20100211, end: 20100211
  11. AMLOR [Concomitant]
  12. ARANESP [Concomitant]
  13. BACTRIM [Concomitant]
  14. TAHOR [Concomitant]
  15. TARDYFERON [Concomitant]
  16. LEDERFOLINE [Concomitant]
  17. LANTUS [Concomitant]
  18. NOVORAPID [Concomitant]
     Dosage: DRUG REPORTED AS NOVORPID
  19. MIMPARA [Concomitant]
  20. CYCLOSPORINE [Concomitant]
     Dates: start: 20101024

REACTIONS (2)
  - PYELONEPHRITIS [None]
  - TRANSPLANT REJECTION [None]
